FAERS Safety Report 6932010-4 (Version None)
Quarter: 2010Q3

REPORT INFORMATION
  Report Type: 
  Country: None (occurrence: None)
  Receive Date: 20100813
  Receipt Date: 20100528
  Transmission Date: 20110219
  Serious: No
  Sender: FDA-Public Use
  Company Number: 1000014135

PATIENT
  Age: 62 Year
  Sex: Female

DRUGS (24)
  1. SAVELLA [Suspect]
     Indication: FIBROMYALGIA
     Dosage: 50 MG (50 MG, 1 IN 1 D), ORAL ; 62.5 MG (62.5 MG, 1 IN 1 D), ORAL
     Route: 048
     Dates: start: 20100401, end: 20100527
  2. SAVELLA [Suspect]
     Indication: FIBROMYALGIA
     Dosage: 50 MG (50 MG, 1 IN 1 D), ORAL ; 62.5 MG (62.5 MG, 1 IN 1 D), ORAL
     Route: 048
     Dates: start: 20100528
  3. LEXAPRO [Concomitant]
  4. OPANA [Concomitant]
  5. EVISTA [Concomitant]
  6. COMPAZINE [Concomitant]
  7. GAS X [Concomitant]
  8. VITAMIN D [Concomitant]
  9. MAALOX [Concomitant]
  10. GLUCOSAMINE [Concomitant]
  11. NEXIUM [Concomitant]
  12. NAPROXEN [Concomitant]
  13. VERAPAMIL HCL [Concomitant]
  14. LIPITOR [Concomitant]
  15. PROAIR HFA [Concomitant]
  16. ADVAIR DISKUS 100/50 [Concomitant]
  17. HYOMAX [Concomitant]
  18. HYDROCHLOROTHIAZIDE [Concomitant]
  19. ESTROGEN [Concomitant]
  20. KLONOPIN [Concomitant]
  21. IMITREX [Concomitant]
  22. PHENERGAN [Concomitant]
  23. POTASSIUM CHLORIDE [Concomitant]
  24. GUAIFENESIN [Concomitant]

REACTIONS (1)
  - DEPRESSION [None]
